FAERS Safety Report 8107424-X (Version None)
Quarter: 2012Q1

REPORT INFORMATION
  Report Type: 
  Country: None (occurrence: None)
  Receive Date: 20120202
  Receipt Date: 20120127
  Transmission Date: 20120608
  Serious: Yes (Life-Threatening, Hospitalization)
  Sender: FDA-Public Use
  Company Number: DE-ELI_LILLY_AND_COMPANY-DE201201008664

PATIENT
  Sex: Male

DRUGS (4)
  1. FOLIC ACID [Concomitant]
  2. VITAMIN B-12 [Concomitant]
  3. ALIMTA [Suspect]
     Dosage: UNK
     Route: 042
     Dates: start: 20100825, end: 20101215
  4. ALIMTA [Suspect]
     Indication: PLEURAL MESOTHELIOMA
     Dosage: 500 MG/M2, UNK
     Route: 042
     Dates: start: 20110202, end: 20110416

REACTIONS (1)
  - ALVEOLITIS [None]
